FAERS Safety Report 9226295 (Version 1)
Quarter: 2013Q2

REPORT INFORMATION
  Report Type: Spontaneous
  Country: US (occurrence: US)
  Receive Date: 20130411
  Receipt Date: 20130411
  Transmission Date: 20140414
  Serious: Yes (Other)
  Sender: FDA-Public Use
  Company Number: US-PFIZER INC-2009184783

PATIENT
  Age: 76 Year
  Sex: Female
  Weight: 68.48 kg

DRUGS (10)
  1. LIPITOR [Suspect]
     Dosage: UNK
     Dates: start: 2005
  2. ATORVASTATIN CALCIUM [Suspect]
     Dosage: UNK
     Dates: start: 20130120, end: 2013
  3. ATORVASTATIN CALCIUM [Suspect]
     Dosage: 40 MG, 1X/DAY
     Dates: start: 2013
  4. ASPIRIN [Suspect]
     Dosage: 81 MG, UNK
  5. AZOPT [Suspect]
     Indication: GLAUCOMA
     Dosage: 1 GTT IN EACH EYE, 2X/DAY
  6. AZOPT [Suspect]
     Indication: CATARACT
  7. LUMIGAN [Suspect]
     Indication: GLAUCOMA
     Dosage: 1 GTT IN EACH EYE, 1X/DAY
  8. LUMIGAN [Suspect]
     Indication: CATARACT
  9. LEVOXYL [Concomitant]
     Indication: THYROID DISORDER
     Dosage: 0.088 MG, 1X/DAY
  10. LOSARTAN POTASSIUM [Concomitant]
     Indication: HYPERTENSION
     Dosage: 25 MG, 2X/DAY

REACTIONS (3)
  - Eye disorder [Unknown]
  - Drug ineffective [Unknown]
  - Myalgia [Unknown]
